FAERS Safety Report 19410183 (Version 4)
Quarter: 2021Q3

REPORT INFORMATION
  Report Type: Spontaneous
  Country: US (occurrence: US)
  Receive Date: 20210614
  Receipt Date: 20210928
  Transmission Date: 20211014
  Serious: No
  Sender: FDA-Public Use
  Company Number: US-SA-2021SA192751

PATIENT
  Age: 59 Year
  Sex: Female

DRUGS (1)
  1. CABLIVI [Suspect]
     Active Substance: CAPLACIZUMAB-YHDP
     Indication: THROMBOTIC MICROANGIOPATHY
     Dosage: 11 MG
     Route: 058
     Dates: start: 20210527, end: 20210910

REACTIONS (10)
  - Compression garment application [Unknown]
  - Alopecia [Unknown]
  - Joint swelling [Not Recovered/Not Resolved]
  - Dyspnoea exertional [Unknown]
  - Erythema [Unknown]
  - Peripheral swelling [Recovering/Resolving]
  - Pain in extremity [Recovering/Resolving]
  - ADAMTS13 activity decreased [Not Recovered/Not Resolved]
  - Swelling face [Unknown]
  - Pruritus [Unknown]

NARRATIVE: CASE EVENT DATE: 2021
